FAERS Safety Report 5873971-4 (Version None)
Quarter: 2008Q3

REPORT INFORMATION
  Report Type: 
  Country: None (occurrence: None)
  Receive Date: 20080908
  Receipt Date: 20080829
  Transmission Date: 20090109
  Serious: Yes (Other)
  Sender: FDA-Public Use
  Company Number: US-MERCK-0809USA00070

PATIENT
  Age: 69 Year
  Sex: Male
  Weight: 77 kg

DRUGS (6)
  1. SINGULAIR [Suspect]
     Indication: COUGH
     Route: 048
     Dates: start: 20080101, end: 20080630
  2. SINGULAIR [Suspect]
     Indication: RHINITIS ALLERGIC
     Route: 048
     Dates: start: 20080101, end: 20080630
  3. LIPITOR [Concomitant]
     Indication: CORONARY ARTERY DISEASE
     Route: 048
     Dates: start: 20040101
  4. LIPITOR [Concomitant]
     Indication: LIPIDS INCREASED
     Route: 048
     Dates: start: 20040101
  5. PLAVIX [Concomitant]
     Indication: CORONARY ARTERY DISEASE
     Route: 065
     Dates: start: 20040101
  6. SYNTHROID [Concomitant]
     Indication: HYPOTHYROIDISM
     Route: 065
     Dates: start: 20000101

REACTIONS (2)
  - DEPRESSION [None]
  - SUICIDAL IDEATION [None]
